FAERS Safety Report 21662539 (Version 1)
Quarter: 2022Q4

REPORT INFORMATION
  Report Type: Spontaneous
  Country: US (occurrence: US)
  Receive Date: 20221130
  Receipt Date: 20221130
  Transmission Date: 20230113
  Serious: No
  Sender: FDA-Public Use
  Company Number: US-ALVOGEN-2022-ALVOGEN-120639

PATIENT
  Sex: Female
  Weight: 82.55 kg

DRUGS (1)
  1. LEVOTHYROXINE [Suspect]
     Active Substance: LEVOTHYROXINE
     Indication: Hypothyroidism
     Dates: start: 20220629

REACTIONS (4)
  - Throat tightness [Unknown]
  - Dyspnoea [Unknown]
  - Cough [Unknown]
  - Secretion discharge [Unknown]
